FAERS Safety Report 18947353 (Version 4)
Quarter: 2022Q2

REPORT INFORMATION
  Report Type: Report from Study
  Country: US (occurrence: US)
  Receive Date: 20210226
  Receipt Date: 20220603
  Transmission Date: 20220721
  Serious: Yes (Life-Threatening)
  Sender: FDA-Public Use
  Company Number: NVSC2021US045001

PATIENT
  Age: 12 Year
  Sex: Female

DRUGS (1)
  1. KYMRIAH [Suspect]
     Active Substance: TISAGENLECLEUCEL
     Indication: Acute lymphocytic leukaemia
     Dosage: UNK, ONCE/SINGLE (CAR VIABLE T CELLS)
     Route: 042
     Dates: start: 20201202, end: 20201202

REACTIONS (1)
  - Post-depletion B-cell recovery [Not Recovered/Not Resolved]

NARRATIVE: CASE EVENT DATE: 20201202
